FAERS Safety Report 4935105-X (Version None)
Quarter: 2006Q1

REPORT INFORMATION
  Report Type: 
  Country: None (occurrence: None)
  Receive Date: 20060302
  Receipt Date: 20060221
  Transmission Date: 20060701
  Serious: Yes (Disabling, Other)
  Sender: FDA-Public Use
  Company Number: 2006026040

PATIENT
  Sex: Female

DRUGS (1)
  1. PROCARDIA XL [Suspect]
     Indication: HYPERTENSION
     Dosage: 30 MG (30 MG, DAILY), ORAL ABOUT 1985
     Route: 048

REACTIONS (3)
  - ARTHROPATHY [None]
  - CARPAL TUNNEL SYNDROME [None]
  - TRIGGER FINGER [None]
